FAERS Safety Report 5229427-5 (Version None)
Quarter: 2007Q1

REPORT INFORMATION
  Report Type: 
  Country: None (occurrence: None)
  Receive Date: 20061201
  Receipt Date: 20060910
  Transmission Date: 20070707
  Serious: No
  Sender: FDA-Public Use
  Company Number: 2006PV021014

PATIENT
  Age: 64 Year
  Sex: Female
  Weight: 101.1521 kg

DRUGS (5)
  1. BYETTA [Suspect]
     Indication: DIABETES MELLITUS NON-INSULIN-DEPENDENT
     Dosage: 5 MCG;BID;SC
     Route: 058
     Dates: start: 20060910
  2. LANTUS [Concomitant]
  3. GLIPIZIDE [Concomitant]
  4. LANTUS [Concomitant]
  5. GLUCOTROL XL [Concomitant]

REACTIONS (5)
  - BLOOD GLUCOSE INCREASED [None]
  - CONSTIPATION [None]
  - DECREASED APPETITE [None]
  - DRUG INEFFECTIVE [None]
  - MEDICATION ERROR [None]
